FAERS Safety Report 11195488 (Version 1)
Quarter: 2015Q2

REPORT INFORMATION
  Report Type: Spontaneous
  Country: JP (occurrence: JP)
  Receive Date: 20150617
  Receipt Date: 20150617
  Transmission Date: 20150821
  Serious: Yes (Life-Threatening, Other)
  Sender: FDA-Public Use
  Company Number: JP-ELI_LILLY_AND_COMPANY-JP201506003762

PATIENT
  Age: 73 Year
  Sex: Female

DRUGS (10)
  1. RABEPRAZOLE SODIUM. [Suspect]
     Active Substance: RABEPRAZOLE SODIUM
     Indication: DYSPEPSIA
     Dosage: 10 MG, QD
     Route: 048
     Dates: start: 20140501
  2. FOLIAMIN [Suspect]
     Active Substance: FOLIC ACID
     Indication: PROPHYLAXIS
     Dosage: 5 MG, WEEKLY (1/W)
     Route: 048
  3. RHEUMATREX [Suspect]
     Active Substance: METHOTREXATE SODIUM
     Indication: RHEUMATOID ARTHRITIS
     Dosage: 8 MG, WEEKLY (1/W)
     Route: 048
  4. RISEDRONATE NA [Suspect]
     Active Substance: RISEDRONATE SODIUM
     Indication: OSTEOPOROSIS
     Dosage: 17.5 MG, WEEKLY (1/W)
     Route: 048
  5. CALCIUM L-ASPARTATE HYDRATE [Suspect]
     Active Substance: ASPARTIC ACID
     Indication: OSTEOPOROSIS
     Dosage: 400 MG, BID
     Route: 048
  6. EDIROL [Suspect]
     Active Substance: ELDECALCITOL
     Indication: OSTEOPOROSIS
     Dosage: 0.75 UG, QD
     Route: 048
     Dates: start: 20140511
  7. EVISTA [Suspect]
     Active Substance: RALOXIFENE HYDROCHLORIDE
     Indication: OSTEOPOROSIS
     Dosage: 60 MG, QD
     Route: 048
  8. ASASURFAN [Suspect]
     Active Substance: SULFASALAZINE
     Indication: RHEUMATOID ARTHRITIS
     Dosage: 500 MG, BID
     Route: 048
  9. FOLIAMIN [Suspect]
     Active Substance: FOLIC ACID
     Dosage: 10 MG, WEEKLY (1/W)
     Route: 048
     Dates: start: 20120813, end: 20150227
  10. RHEUMATREX [Suspect]
     Active Substance: METHOTREXATE SODIUM
     Dosage: 10 MG, WEEKLY (1/W)
     Route: 048
     Dates: end: 20150220

REACTIONS (3)
  - Cough [Unknown]
  - Interstitial lung disease [Recovered/Resolved]
  - Dyspnoea [Unknown]

NARRATIVE: CASE EVENT DATE: 20150218
